FAERS Safety Report 6884656-X (Version None)
Quarter: 2010Q3

REPORT INFORMATION
  Report Type: 
  Country: None (occurrence: None)
  Receive Date: 20100729
  Receipt Date: 20070712
  Transmission Date: 20110219
  Serious: Yes (Hospitalization)
  Sender: FDA-Public Use
  Company Number: US-PFIZER INC-2007058151

PATIENT
  Sex: Female
  Weight: 113.4 kg

DRUGS (2)
  1. CELEBREX [Suspect]
     Indication: OSTEOARTHRITIS
     Dates: start: 20000406, end: 20050108
  2. VIOXX [Suspect]
     Indication: OSTEOARTHRITIS
     Dates: start: 20031014, end: 20040930

REACTIONS (1)
  - MYOCARDIAL INFARCTION [None]
